FAERS Safety Report 5608535-0 (Version None)
Quarter: 2008Q1

REPORT INFORMATION
  Report Type: 
  Country: None (occurrence: None)
  Receive Date: 20080125
  Receipt Date: 20080115
  Transmission Date: 20080703
  Serious: Yes (Life-Threatening)
  Sender: FDA-Public Use
  Company Number: GXKR2008DE00805

PATIENT
  Age: 65 Year
  Sex: Female

DRUGS (5)
  1. METOPROLOL TARTRATE [Suspect]
     Indication: VENTRICULAR TACHYCARDIA
     Dosage: 50 MG DAY
     Dates: start: 20070401, end: 20070101
  2. AMIODARAONE                      (AMIODARONE) [Suspect]
     Indication: ATRIAL FIBRILLATION
     Dosage: 200 MG DAY
     Dates: start: 20060101, end: 20070101
  3. LOSARTAN POTASSIUM [Concomitant]
  4. HYDROCHLOROTHIAZIDE [Concomitant]
  5. ACETYLSALICYLIC ACID              (ACETYLALICYLIC ACID) [Concomitant]

REACTIONS (4)
  - BRUGADA SYNDROME [None]
  - CONDITION AGGRAVATED [None]
  - ELECTROCARDIOGRAM CHANGE [None]
  - VENTRICULAR TACHYCARDIA [None]
